FAERS Safety Report 6101587-3 (Version None)
Quarter: 2009Q1

REPORT INFORMATION
  Report Type: 
  Country: None (occurrence: None)
  Receive Date: 20090304
  Receipt Date: 20090223
  Transmission Date: 20090719
  Serious: Yes (Hospitalization)
  Sender: FDA-Public Use
  Company Number: JP-ABBOTT-09P-087-0501675-00

PATIENT
  Age: 14 Year
  Sex: Female

DRUGS (3)
  1. CEFZON [Suspect]
     Indication: DRUG USE FOR UNKNOWN INDICATION
     Route: 048
     Dates: start: 20081122, end: 20081124
  2. SERRAPEPTASE [Suspect]
     Indication: DRUG USE FOR UNKNOWN INDICATION
     Route: 048
     Dates: start: 20081122, end: 20081124
  3. LORATADINE [Concomitant]
     Indication: DRUG USE FOR UNKNOWN INDICATION
     Route: 048
     Dates: start: 20081122, end: 20081124

REACTIONS (2)
  - ARTHRALGIA [None]
  - TUBULOINTERSTITIAL NEPHRITIS [None]
